FAERS Safety Report 20806554 (Version 3)
Quarter: 2022Q2

REPORT INFORMATION
  Report Type: Report from Study
  Country: IT (occurrence: IT)
  Receive Date: 20220510
  Receipt Date: 20220514
  Transmission Date: 20220720
  Serious: Yes (Other)
  Sender: FDA-Public Use
  Company Number: None

PATIENT
  Age: 89 Year
  Sex: Female

DRUGS (9)
  1. FENTANYL [Suspect]
     Active Substance: FENTANYL
     Indication: Neuromuscular pain
     Dosage: ; CYCLICAL
     Route: 062
     Dates: start: 20211001, end: 20220205
  2. ASPIRIN [Concomitant]
     Active Substance: ASPIRIN
  3. ISOSORBIDE DINITRATE [Concomitant]
     Active Substance: ISOSORBIDE DINITRATE
  4. LETROZOLE [Concomitant]
     Active Substance: LETROZOLE
  5. SERTRALINE [Concomitant]
     Active Substance: SERTRALINE HYDROCHLORIDE
  6. LACTULOSE [Concomitant]
     Active Substance: LACTULOSE
  7. MIRTAZAPINE [Concomitant]
     Active Substance: MIRTAZAPINE
  8. TEGRETOL [Concomitant]
     Active Substance: CARBAMAZEPINE
  9. HYDROCHLOROTHIAZIDE\RAMIPRIL [Concomitant]
     Active Substance: HYDROCHLOROTHIAZIDE\RAMIPRIL

REACTIONS (1)
  - Faecaloma [Recovering/Resolving]

NARRATIVE: CASE EVENT DATE: 20220130
